FAERS Safety Report 6302442-6 (Version None)
Quarter: 2009Q3

REPORT INFORMATION
  Report Type: 
  Country: None (occurrence: None)
  Receive Date: 20090810
  Receipt Date: 20090805
  Transmission Date: 20100115
  Serious: Yes (Death)
  Sender: FDA-Public Use
  Company Number: RU-ROCHE-639426

PATIENT
  Sex: Male
  Weight: 51 kg

DRUGS (3)
  1. CAPECITABINE [Suspect]
     Indication: GASTRIC CANCER
     Dosage: FREQUENCY: D1-14Q3W(DAY ONE TO FOURTEEN EVERY THREE WEEKS)
     Route: 048
     Dates: start: 20081202
  2. BLINDED BEVACIZUMAB [Suspect]
     Indication: GASTRIC CANCER
     Dosage: FREQUENCY: D1Q3W(DAY ONE EVERY THREE WEEKS)
     Route: 042
     Dates: start: 20081202
  3. CISPLATIN [Suspect]
     Indication: GASTRIC CANCER
     Dosage: FREQUENCY: D1Q3W( DAY ONE EVERY THREE WEEK)
     Route: 042
     Dates: start: 20081202

REACTIONS (1)
  - GASTRIC HAEMORRHAGE [None]
